FAERS Safety Report 4462981-X (Version None)
Quarter: 2004Q3

REPORT INFORMATION
  Report Type: 
  Country: None (occurrence: None)
  Receive Date: 20040930
  Receipt Date: 20040920
  Transmission Date: 20050211
  Serious: Yes (Hospitalization)
  Sender: FDA-Public Use
  Company Number: 200413514FR

PATIENT
  Age: 85 Year
  Sex: Female

DRUGS (4)
  1. CORTANCYL [Suspect]
     Route: 048
     Dates: start: 20040412, end: 20040418
  2. LASILIX [Suspect]
     Route: 048
     Dates: end: 20040418
  3. CIPROFLOXACIN [Suspect]
     Route: 048
     Dates: start: 20040411, end: 20040417
  4. DEROXAT [Suspect]
     Route: 048
     Dates: end: 20040418

REACTIONS (4)
  - AMNESTIC DISORDER [None]
  - CONVULSION [None]
  - HYPOKALAEMIA [None]
  - MENTAL IMPAIRMENT [None]
